FAERS Safety Report 4426366-4 (Version None)
Quarter: 2004Q3

REPORT INFORMATION
  Report Type: 
  Country: None (occurrence: None)
  Receive Date: 20040811
  Receipt Date: 20040805
  Transmission Date: 20050211
  Serious: Yes (Death)
  Sender: FDA-Public Use
  Company Number: GBWYE958409AUG04

PATIENT
  Sex: Female

DRUGS (2)
  1. PREMIQUE (CONJUGATED ESTROGENS / MEDROXYPROGESTERONE ACETATE, TABLET, [Suspect]
     Indication: HORMONE REPLACEMENT THERAPY
     Dosage: OD ORAL
     Route: 048
     Dates: start: 19840101
  2. BENDROFLUAZIDE (BENDROFLUMETHIAZIDE) [Concomitant]

REACTIONS (1)
  - SUBARACHNOID HAEMORRHAGE [None]
